FAERS Safety Report 9702079 (Version 1)
Quarter: 2013Q4

REPORT INFORMATION
  Report Type: Spontaneous
  Country: US (occurrence: None)
  Receive Date: 20131120
  Receipt Date: 20131120
  Transmission Date: 20140711
  Serious: Yes (Hospitalization)
  Sender: FDA-Public Use
  Company Number: None

PATIENT
  Age: 64 None
  Sex: Female
  Weight: 49.9 kg

DRUGS (17)
  1. ALBUTEROL SULFATE [Suspect]
     Indication: CHRONIC OBSTRUCTIVE PULMONARY DISEASE
     Dosage: 2.5 MG/3 ML 25X 3ML 4X DAILY INHALED BY MACHINE
     Dates: start: 20131018, end: 20131018
  2. ALBUTEROL SULFATE [Suspect]
     Indication: EMPHYSEMA
     Dosage: 2.5 MG/3 ML 25X 3ML 4X DAILY INHALED BY MACHINE
     Dates: start: 20131018, end: 20131018
  3. IPRATROPIUM [Concomitant]
  4. CRESTOR [Concomitant]
  5. LEVOTHYROXIN [Concomitant]
  6. HYDROXY-ZINE HCL [Concomitant]
  7. MONTELUKAST [Concomitant]
  8. NEXIUM [Concomitant]
  9. SPIRVA [Concomitant]
  10. VITAMIN D 3 [Concomitant]
  11. B-COMPLEX W/B12 [Concomitant]
  12. GABAPENTIN [Concomitant]
  13. AZELASTINE [Concomitant]
  14. FLUTICASONE PROPIONATE [Concomitant]
  15. VENTOLIN [Concomitant]
  16. ADVAIR [Concomitant]
  17. DULERA [Concomitant]

REACTIONS (1)
  - Myocardial infarction [None]
